FAERS Safety Report 10903221 (Version 1)
Quarter: 2015Q1

REPORT INFORMATION
  Report Type: Report from Study
  Country: DK (occurrence: DK)
  Receive Date: 20150311
  Receipt Date: 20150311
  Transmission Date: 20150721
  Serious: Yes (Other)
  Sender: FDA-Public Use
  Company Number: DK-BEH-2015049538

PATIENT
  Sex: Female

DRUGS (1)
  1. PRIVIGEN [Suspect]
     Active Substance: HUMAN IMMUNOGLOBULIN G
     Indication: PROPHYLAXIS

REACTIONS (3)
  - Abortion spontaneous [Recovered/Resolved]
  - Subclavian vein thrombosis [Recovered/Resolved]
  - Exposure during pregnancy [Recovered/Resolved]
